FAERS Safety Report 17148529 (Version 2)
Quarter: 2019Q4

REPORT INFORMATION
  Report Type: Spontaneous
  Country: US (occurrence: US)
  Receive Date: 20191212
  Receipt Date: 20191220
  Transmission Date: 20200122
  Serious: Yes (Hospitalization)
  Sender: FDA-Public Use
  Company Number: US-ROCHE-2494859

PATIENT
  Age: 19 Year
  Sex: Female

DRUGS (1)
  1. PULMOZYME [Suspect]
     Active Substance: DORNASE ALFA
     Indication: PRODUCT USED FOR UNKNOWN INDICATION
     Dosage: DAILY;2.5MG/2.5ML
     Route: 055
     Dates: start: 201809

REACTIONS (2)
  - Cystic fibrosis [Unknown]
  - Nausea [Unknown]

NARRATIVE: CASE EVENT DATE: 20191202
